FAERS Safety Report 13718327 (Version 2)
Quarter: 2017Q3

REPORT INFORMATION
  Report Type: Spontaneous
  Country: FR (occurrence: FR)
  Receive Date: 20170705
  Receipt Date: 20170713
  Transmission Date: 20171127
  Serious: Yes (Other)
  Sender: FDA-Public Use
  Company Number: FR-PFIZER INC-2017281775

PATIENT
  Age: 57 Year
  Sex: Female

DRUGS (4)
  1. DACARBAZINE. [Concomitant]
     Active Substance: DACARBAZINE
     Indication: UTERINE LEIOMYOSARCOMA
     Dosage: UNK, CYCLIC
  2. GEMZAR [Suspect]
     Active Substance: GEMCITABINE HYDROCHLORIDE
     Dosage: UNK (REDUCED IN DOSE)
  3. GEMZAR [Suspect]
     Active Substance: GEMCITABINE HYDROCHLORIDE
     Dosage: UNK, CYCLIC (TWELFTH CYCLE OF TREATMENT WITH GEMCITABINE (CUMULATIVE DOSE OF 28 800 MG)
  4. GEMZAR [Suspect]
     Active Substance: GEMCITABINE HYDROCHLORIDE
     Indication: UTERINE LEIOMYOSARCOMA
     Dosage: UNK, CYCLIC

REACTIONS (1)
  - Thrombotic microangiopathy [Recovering/Resolving]
